FAERS Safety Report 8440451-1 (Version None)
Quarter: 2012Q2

REPORT INFORMATION
  Report Type: 
  Country: None (occurrence: None)
  Receive Date: 20120615
  Receipt Date: 20120607
  Transmission Date: 20120825
  Serious: Yes (Hospitalization)
  Sender: FDA-Public Use
  Company Number: US-GLAXOSMITHKLINE-A0887077A

PATIENT
  Age: 57 Year
  Sex: Male
  Weight: 180 kg

DRUGS (8)
  1. CRESTOR [Concomitant]
  2. LYRICA [Concomitant]
  3. ALBUTEROL [Concomitant]
  4. GLUCOPHAGE [Concomitant]
  5. NPH INSULIN [Concomitant]
  6. AVANDIA [Suspect]
     Indication: DIABETES MELLITUS
     Dosage: 4MG PER DAY
     Route: 048
     Dates: start: 20020219, end: 20080601
  7. NEXIUM [Concomitant]
  8. ADVAIR DISKUS 100/50 [Concomitant]

REACTIONS (4)
  - CARDIAC FAILURE CONGESTIVE [None]
  - RENAL FAILURE [None]
  - CHOLELITHIASIS [None]
  - MYOCARDIAL INFARCTION [None]
